FAERS Safety Report 17808436 (Version 3)
Quarter: 2024Q2

REPORT INFORMATION
  Report Type: Spontaneous
  Country: ES (occurrence: ES)
  Receive Date: 20200520
  Receipt Date: 20240602
  Transmission Date: 20240716
  Serious: Yes (Disabling, Other)
  Sender: FDA-Public Use
  Company Number: ES-JNJFOC-20200341564

PATIENT
  Age: 45 Year
  Sex: Male

DRUGS (10)
  1. STELARA [Suspect]
     Active Substance: USTEKINUMAB
     Indication: Crohn^s disease
     Dates: start: 20181106
  2. STELARA [Suspect]
     Active Substance: USTEKINUMAB
     Route: 058
  3. STELARA [Suspect]
     Active Substance: USTEKINUMAB
     Route: 058
     Dates: start: 20190702
  4. CYANOCOBALAMIN [Concomitant]
     Active Substance: CYANOCOBALAMIN
     Indication: Vitamin B12 deficiency
  5. LANSOPRAZOLE [Concomitant]
     Active Substance: LANSOPRAZOLE
  6. GEMFIBROZIL [Concomitant]
     Active Substance: GEMFIBROZIL
  7. DESVENLAFAXINE [Concomitant]
     Active Substance: DESVENLAFAXINE
  8. FOLIC ACID [Concomitant]
     Active Substance: FOLIC ACID
  9. CALCIFEDIOL [Concomitant]
     Active Substance: CALCIFEDIOL
  10. CORTISONE [Concomitant]
     Active Substance: CORTISONE

REACTIONS (9)
  - Intestinal obstruction [Not Recovered/Not Resolved]
  - Arthritis [Unknown]
  - Crohn^s disease [Unknown]
  - Product use issue [Unknown]
  - Off label use [Unknown]
  - Sexual dysfunction [Not Recovered/Not Resolved]
  - Atopy [Not Recovered/Not Resolved]
  - Tonsillitis [Unknown]
  - Drug ineffective [Unknown]

NARRATIVE: CASE EVENT DATE: 20200101
